FAERS Safety Report 10728149 (Version 8)
Quarter: 2015Q2

REPORT INFORMATION
  Report Type: Report from Study
  Country: AT (occurrence: AT)
  Receive Date: 20150121
  Receipt Date: 20150601
  Transmission Date: 20150821
  Serious: Yes (Hospitalization)
  Sender: FDA-Public Use
  Company Number: AT-B.I. PHARMACEUTICALS,INC./RIDGEFIELD-2015-BI-01697BI

PATIENT
  Age: 58 Year
  Sex: Male
  Weight: 93.5 kg

DRUGS (19)
  1. EPLERENON [Suspect]
     Active Substance: EPLERENONE
     Dosage: 25 MG
     Route: 048
     Dates: start: 20150116
  2. ISOMONAT [Concomitant]
     Indication: ANGINA PECTORIS
     Dosage: 60 MG
     Route: 048
     Dates: start: 20150116
  3. METOPROLOL [Concomitant]
     Active Substance: METOPROLOL
     Indication: ISCHAEMIC CARDIOMYOPATHY
     Dosage: 95 MG
     Route: 048
     Dates: start: 20150116
  4. TORASEMID [Suspect]
     Active Substance: TORSEMIDE
     Indication: DIURETIC THERAPY
     Dosage: 10 MG
     Route: 048
     Dates: start: 20141002, end: 20150109
  5. UROSIN [Concomitant]
     Active Substance: ALLOPURINOL
     Dosage: 150 MG
     Route: 048
     Dates: start: 201304
  6. DANCOR [Concomitant]
     Active Substance: NICORANDIL
     Indication: CARDIAC DISORDER
     Dosage: 40 MG
     Route: 048
     Dates: start: 2006
  7. RAMIPRIL. [Suspect]
     Active Substance: RAMIPRIL
     Dosage: 10 MG
     Route: 048
     Dates: start: 20150120
  8. ISMN [Concomitant]
     Active Substance: ISOSORBIDE MONONITRATE
     Indication: ANGINA PECTORIS
     Dosage: 60 MG
     Route: 048
     Dates: start: 2006, end: 20150109
  9. DIAMICRON [Concomitant]
     Active Substance: GLICLAZIDE
     Indication: TYPE 2 DIABETES MELLITUS
     Dosage: 60 MG
     Route: 048
     Dates: start: 2010, end: 20150109
  10. DIAMICRON [Concomitant]
     Active Substance: GLICLAZIDE
     Dosage: 60 MG
     Route: 048
     Dates: start: 20150116
  11. EPLERENON [Suspect]
     Active Substance: EPLERENONE
     Indication: CARDIAC FAILURE
     Dosage: 25 MG
     Route: 048
     Dates: start: 20130717, end: 20150109
  12. UROSIN [Concomitant]
     Active Substance: ALLOPURINOL
     Indication: HYPERURICAEMIA
     Dosage: 300 MG
     Route: 048
     Dates: start: 201304
  13. CRESTOR [Concomitant]
     Active Substance: ROSUVASTATIN CALCIUM
     Indication: HYPERCHOLESTEROLAEMIA
     Dosage: 10 MG
     Route: 048
     Dates: start: 2010
  14. TORASEMID [Suspect]
     Active Substance: TORSEMIDE
     Dosage: 10 MG
     Route: 048
     Dates: start: 20150116
  15. RAMIPRIL. [Suspect]
     Active Substance: RAMIPRIL
     Indication: HYPERTENSION
     Dosage: 10 MG
     Route: 048
     Dates: start: 2011, end: 20150109
  16. TASS [Concomitant]
     Indication: PLATELET AGGREGATION
     Dosage: 100 MG
     Route: 048
     Dates: start: 1990
  17. MARCOUMAR [Concomitant]
     Active Substance: PHENPROCOUMON
     Indication: PLATELET AGGREGATION
     Dosage: DAILY DOSE: 1/4-1/2 IGL
     Route: 048
     Dates: start: 20121227
  18. SEDACORON [Concomitant]
     Active Substance: AMIODARONE HYDROCHLORIDE
     Indication: ARRHYTHMIA
     Dosage: 200 MG
     Route: 048
     Dates: start: 20150302
  19. BI 10773 [Suspect]
     Active Substance: EMPAGLIFLOZIN
     Indication: TYPE 2 DIABETES MELLITUS
     Dosage: 25 MG
     Route: 048
     Dates: start: 20111004, end: 20150109

REACTIONS (7)
  - Vomiting [Recovered/Resolved]
  - Nausea [Recovered/Resolved]
  - Dehydration [Recovered/Resolved]
  - Acute kidney injury [Recovered/Resolved]
  - Syncope [Recovered/Resolved]
  - Back pain [Recovered/Resolved]
  - Diarrhoea [Recovered/Resolved]

NARRATIVE: CASE EVENT DATE: 20150105
